FAERS Safety Report 7277326-X (Version None)
Quarter: 2011Q1

REPORT INFORMATION
  Report Type: 
  Country: None (occurrence: None)
  Receive Date: 20110131
  Receipt Date: 20110121
  Transmission Date: 20110831
  Serious: Yes (Death, Hospitalization)
  Sender: FDA-Public Use
  Company Number: 2011SP002897

PATIENT
  Age: 72 Year
  Sex: Male

DRUGS (8)
  1. COTAREG [Concomitant]
  2. TAHOR [Concomitant]
  3. HYPERIUM [Concomitant]
  4. PLAVIX [Concomitant]
  5. TANAKAN [Concomitant]
  6. MIRTAZAPINE [Suspect]
     Indication: DEPRESSION
     Dosage: 1 DF;QD;PO
     Route: 048
     Dates: start: 20110106, end: 20110108
  7. ZOLOFT [Concomitant]
  8. NORPROLAC (QUINAGOLIDE HYDROCHLORIDE) [Suspect]
     Indication: HYPERPROLACTINAEMIA
     Dosage: 25 MCG;ONCE;PO
     Route: 048
     Dates: start: 20110108, end: 20110108

REACTIONS (8)
  - LEUKOCYTOSIS [None]
  - LOSS OF CONSCIOUSNESS [None]
  - SECRETORY ADENOMA OF PITUITARY [None]
  - CEREBRAL SMALL VESSEL ISCHAEMIC DISEASE [None]
  - HYPERPROLACTINAEMIA [None]
  - CARDIO-RESPIRATORY ARREST [None]
  - HEART RATE DECREASED [None]
  - BLOOD PRESSURE SYSTOLIC INCREASED [None]
